FAERS Safety Report 19552622 (Version 2)
Quarter: 2021Q3

REPORT INFORMATION
  Report Type: Spontaneous
  Country: JP (occurrence: JP)
  Receive Date: 20210715
  Receipt Date: 20210909
  Transmission Date: 20211014
  Serious: Yes (Death, Hospitalization, Congenital Anomaly)
  Sender: FDA-Public Use
  Company Number: JP-JNJFOC-20210721631

PATIENT
  Age: 2 Day
  Sex: Female
  Weight: 2.68 kg

DRUGS (5)
  1. TRACLEER [Suspect]
     Active Substance: BOSENTAN
     Indication: NEWBORN PERSISTENT PULMONARY HYPERTENSION
     Dosage: DOSE UNKNOWN
     Route: 050
     Dates: start: 20200817, end: 20200821
  2. RED BLOOD CELLS, CONCENTRATED [Concomitant]
     Active Substance: HUMAN RED BLOOD CELL
     Dosage: DOSE UNKNOWN
     Route: 065
     Dates: start: 20200813, end: 20200902
  3. NITRIC OXIDE. [Suspect]
     Active Substance: NITRIC OXIDE
     Indication: NEWBORN PERSISTENT PULMONARY HYPERTENSION
     Dosage: 20PPM CONTINUOUS
     Route: 055
     Dates: start: 20200811, end: 20200824
  4. PLATELETS [Concomitant]
     Active Substance: HUMAN PLATELET, ALLOGENIC
     Dosage: DOSE UNKNOWN
     Route: 065
     Dates: start: 20200813, end: 20200902
  5. FRESH FROZEN PLASMA [Concomitant]
     Active Substance: HUMAN PLASMA
     Dosage: DOSE UNKNOWN
     Route: 065
     Dates: start: 20200813, end: 20200902

REACTIONS (3)
  - Product administered to patient of inappropriate age [Unknown]
  - Pulmonary congestion [Fatal]
  - Off label use [Unknown]

NARRATIVE: CASE EVENT DATE: 20200820
